FAERS Safety Report 17537025 (Version 1)
Quarter: 2020Q1

REPORT INFORMATION
  Report Type: Spontaneous
  Country: GB (occurrence: GB)
  Receive Date: 20200313
  Receipt Date: 20200313
  Transmission Date: 20200409
  Serious: Yes (Other)
  Sender: FDA-Public Use
  Company Number: GB-ACCORD-175521

PATIENT
  Age: 4 Year
  Sex: Male

DRUGS (1)
  1. FUROSEMIDE. [Suspect]
     Active Substance: FUROSEMIDE
     Indication: PRODUCT USED FOR UNKNOWN INDICATION
     Dosage: 20MG IN 2ML

REACTIONS (3)
  - Incorrect dose administered [Unknown]
  - Abdominal pain upper [Recovered/Resolved]
  - Pallor [Recovering/Resolving]
